FAERS Safety Report 14107875 (Version 1)
Quarter: 2017Q4

REPORT INFORMATION
  Report Type: Spontaneous
  Country: US (occurrence: US)
  Receive Date: 20171019
  Receipt Date: 20171019
  Transmission Date: 20180321
  Serious: No
  Sender: FDA-Public Use
  Company Number: US-GLAXOSMITHKLINE-US2017159919

PATIENT

DRUGS (1)
  1. NUCALA [Suspect]
     Active Substance: MEPOLIZUMAB
     Indication: EOSINOPHILIC MYOCARDITIS
     Dosage: UNK UNK, U

REACTIONS (2)
  - Product use in unapproved indication [Unknown]
  - Off label use [Unknown]
